FAERS Safety Report 5595077-4 (Version None)
Quarter: 2008Q1

REPORT INFORMATION
  Report Type: 
  Country: None (occurrence: None)
  Receive Date: 20080117
  Receipt Date: 20080107
  Transmission Date: 20080703
  Serious: Yes (Hospitalization)
  Sender: FDA-Public Use
  Company Number: FR-ROCHE-540193

PATIENT
  Age: 77 Year
  Sex: Male

DRUGS (4)
  1. CAPECITABINE [Suspect]
     Dosage: GIVEN ON DAYS 1 TO 14 OF EACH CYCLE.
     Route: 048
     Dates: start: 20040316, end: 20040329
  2. CAPECITABINE [Suspect]
     Dosage: REDUCED DOSE. GIVEN ON DAYS 1 TO 14 OF EACH CYCLE.
     Route: 048
     Dates: start: 20040405
  3. ELOXATIN [Suspect]
     Dosage: GIVEN ON DAY 2 OF EACH CYCLE.
     Route: 042
     Dates: start: 20040317, end: 20040317
  4. ELOXATIN [Suspect]
     Dosage: REDUCED DOSE. GIVEN ON DAY 2 OF EACH CYCLE.
     Route: 042
     Dates: start: 20040406

REACTIONS (5)
  - ANAEMIA [None]
  - ANOREXIA [None]
  - DEHYDRATION [None]
  - DIABETES MELLITUS INADEQUATE CONTROL [None]
  - NAUSEA [None]
